FAERS Safety Report 14191651 (Version 1)
Quarter: 2017Q4

REPORT INFORMATION
  Report Type: Spontaneous
  Country: GB (occurrence: GB)
  Receive Date: 20171115
  Receipt Date: 20171115
  Transmission Date: 20180321
  Serious: Yes (Hospitalization)
  Sender: FDA-Public Use
  Company Number: GB-MYLANLABS-2017M1070989

PATIENT
  Age: 85 Year
  Sex: Female
  Weight: 50 kg

DRUGS (7)
  1. ATORVASTATIN [Concomitant]
     Active Substance: ATORVASTATIN
  2. CITALOPRAM [Concomitant]
     Active Substance: CITALOPRAM HYDROBROMIDE
  3. FERROUS FUMARATE [Concomitant]
     Active Substance: FERROUS FUMARATE
  4. DONEPEZIL. [Suspect]
     Active Substance: DONEPEZIL
     Indication: DEMENTIA ALZHEIMER^S TYPE
     Route: 048
     Dates: start: 20120818, end: 20171025
  5. CODEINE PHOSPHATE [Concomitant]
     Active Substance: CODEINE PHOSPHATE
  6. DOCUSATE [Concomitant]
     Active Substance: DOCUSATE
  7. PARACETAMOL [Concomitant]
     Active Substance: ACETAMINOPHEN

REACTIONS (2)
  - Orthostatic hypotension [Unknown]
  - Sinus bradycardia [Not Recovered/Not Resolved]

NARRATIVE: CASE EVENT DATE: 20171025
